FAERS Safety Report 5341435-2 (Version None)
Quarter: 2007Q2

REPORT INFORMATION
  Report Type: 
  Country: None (occurrence: None)
  Receive Date: 20070601
  Receipt Date: 20070521
  Transmission Date: 20071010
  Serious: Yes (Hospitalization, Other)
  Sender: FDA-Public Use
  Company Number: US-JNJFOC-20070405582

PATIENT
  Sex: Female
  Weight: 72.12 kg

DRUGS (5)
  1. REMICADE [Suspect]
     Dosage: 400 MG
     Route: 042
  2. REMICADE [Suspect]
     Indication: CROHN'S DISEASE
     Dosage: 400 MG
     Route: 042
  3. ENDOCORT [Concomitant]
  4. IMURAN [Concomitant]
  5. PREDNISONE TAB [Concomitant]

REACTIONS (7)
  - ABDOMINAL PAIN [None]
  - ARTHRALGIA [None]
  - FACIAL PAIN [None]
  - MYALGIA [None]
  - PRINZMETAL ANGINA [None]
  - PULMONARY HYPERTENSION [None]
  - RASH [None]
